FAERS Safety Report 18972779 (Version 3)
Quarter: 2021Q2

REPORT INFORMATION
  Report Type: Report from Study
  Country: KR (occurrence: KR)
  Receive Date: 20210305
  Receipt Date: 20210405
  Transmission Date: 20210717
  Serious: Yes (Other)
  Sender: FDA-Public Use
  Company Number: NVSC2021KR048982

PATIENT
  Age: 63 Year
  Sex: Male

DRUGS (4)
  1. TRUSOPT [Concomitant]
     Active Substance: DORZOLAMIDE HYDROCHLORIDE
     Indication: GLAUCOMA
     Dosage: 1 DRP, TID (LEFT, RIGHT EYES)
     Route: 065
     Dates: start: 20170105, end: 20200713
  2. SIMBRINZA [Suspect]
     Active Substance: BRIMONIDINE TARTRATE\BRINZOLAMIDE
     Indication: OPEN ANGLE GLAUCOMA
     Dosage: 1 DRP, BID
     Route: 047
     Dates: start: 20200714, end: 20210126
  3. COMBIGAN [Concomitant]
     Active Substance: BRIMONIDINE TARTRATE\TIMOLOL MALEATE
     Indication: GLAUCOMA
     Dosage: 1 DRP, BID (LEFT, RIGHT EYES)
     Route: 065
     Dates: start: 20180726, end: 20200713
  4. LUMIGAN [Concomitant]
     Active Substance: BIMATOPROST
     Indication: GLAUCOMA
     Dosage: 1 DRP, QD (RIGHT EYE)
     Route: 065
     Dates: start: 20180111

REACTIONS (1)
  - Optic disc haemorrhage [Recovering/Resolving]

NARRATIVE: CASE EVENT DATE: 20210126
